FAERS Safety Report 22621384 (Version 1)
Quarter: 2023Q2

REPORT INFORMATION
  Report Type: Spontaneous
  Country: US (occurrence: None)
  Receive Date: 20230618
  Receipt Date: 20230618
  Transmission Date: 20230721
  Serious: Yes (Other)
  Sender: FDA-Public Use
  Company Number: None

PATIENT
  Age: 77 Year
  Sex: Male
  Weight: 120.6 kg

DRUGS (9)
  1. IMIQUIMOD [Suspect]
     Active Substance: IMIQUIMOD
     Indication: Precancerous skin lesion
     Dosage: OTHER QUANTITY : 1 PACKET;?
     Route: 061
     Dates: start: 20230611, end: 20230615
  2. Sotelol [Concomitant]
  3. Carvidalol [Concomitant]
  4. FUROSEMIDE [Concomitant]
     Active Substance: FUROSEMIDE
  5. WARFARIN [Concomitant]
     Active Substance: WARFARIN
  6. LORAZEPAM [Concomitant]
     Active Substance: LORAZEPAM
  7. HYDROCODONE [Concomitant]
     Active Substance: HYDROCODONE
  8. NAPROXEN [Concomitant]
     Active Substance: NAPROXEN
  9. ACETAMINOPHEN [Concomitant]
     Active Substance: ACETAMINOPHEN

REACTIONS (8)
  - Nausea [None]
  - Fatigue [None]
  - Malaise [None]
  - Dyspnoea [None]
  - Ataxia [None]
  - Back pain [None]
  - Decreased appetite [None]
  - Influenza like illness [None]

NARRATIVE: CASE EVENT DATE: 20230613
